FAERS Safety Report 24301291 (Version 2)
Quarter: 2024Q4

REPORT INFORMATION
  Report Type: Spontaneous
  Country: US (occurrence: US)
  Receive Date: 20240910
  Receipt Date: 20241004
  Transmission Date: 20250114
  Serious: No
  Sender: BRISTOL MYERS SQUIBB
  Company Number: US-BRISTOL-MYERS SQUIBB COMPANY-2024-142348

PATIENT
  Age: 86 Year
  Sex: Female
  Weight: 95.25 kg

DRUGS (1)
  1. REVLIMID [Suspect]
     Active Substance: LENALIDOMIDE
     Indication: Myelodysplastic syndrome
     Route: 048
     Dates: start: 20230901

REACTIONS (5)
  - Acne [Not Recovered/Not Resolved]
  - Ear pain [Unknown]
  - Eye pain [Unknown]
  - Arthralgia [Unknown]
  - Poor quality sleep [Unknown]
